FAERS Safety Report 23220086 (Version 1)
Quarter: 2023Q4

REPORT INFORMATION
  Report Type: Spontaneous
  Country: NL (occurrence: NL)
  Receive Date: 20231122
  Receipt Date: 20231122
  Transmission Date: 20240110
  Serious: Yes (Hospitalization)
  Sender: FDA-Public Use
  Company Number: None

PATIENT
  Age: 71 Year
  Sex: Female
  Weight: 79.9 kg

DRUGS (5)
  1. PREDNISOLONE [Suspect]
     Active Substance: PREDNISOLONE
     Indication: Blister
     Dosage: 1 X PER DAY 2 PIECES, UNIT DOSE:60MG,FREQUENCY TIME:1 DAYS
     Dates: start: 20230616
  2. OLANZAPINE [Concomitant]
     Active Substance: OLANZAPINE
     Indication: Product used for unknown indication
     Dosage: DOSE AND STRENGTH: 5 MG (MILLIGRAM, THERAPY START AND END DATE:ASKU
  3. DOXYCYCLINE [Concomitant]
     Active Substance: DOXYCYCLINE
     Indication: Product used for unknown indication
     Dosage: DOSE AND STRENGTH:100 MG, THERAPY START AND END DATE:ASKU
  4. CITALOPRAM [Concomitant]
     Active Substance: CITALOPRAM HYDROBROMIDE
     Indication: Product used for unknown indication
     Dosage: DOSE AND STRENGTH:10 MG (MILLIGRAM),THERAPY START AND END DATE:ASKU
  5. LORAZEPAM [Concomitant]
     Active Substance: LORAZEPAM
     Indication: Product used for unknown indication
     Dosage: DOSE:1 MG (MILLIGRAM),STRENGTH:10MG,THERAPY START AND END DATE:ASKU

REACTIONS (3)
  - Major depression [Recovered/Resolved]
  - Catatonia [Recovered/Resolved]
  - Hypomania [Recovered/Resolved]
